APPROVED DRUG PRODUCT: METRONIDAZOLE IN PLASTIC CONTAINER
Active Ingredient: METRONIDAZOLE
Strength: 500MG/100ML
Dosage Form/Route: INJECTABLE;INJECTION
Application: A205531 | Product #001
Applicant: RISING PHARMA HOLDING INC
Approved: May 9, 2017 | RLD: No | RS: No | Type: DISCN